FAERS Safety Report 8106553-4 (Version None)
Quarter: 2012Q1

REPORT INFORMATION
  Report Type: 
  Country: None (occurrence: None)
  Receive Date: 20120202
  Receipt Date: 20120125
  Transmission Date: 20120608
  Serious: Yes (Hospitalization)
  Sender: FDA-Public Use
  Company Number: US-BAYER-2011-003323

PATIENT
  Age: 50 Year
  Sex: Female
  Weight: 89.796 kg

DRUGS (9)
  1. NSAID'S [Concomitant]
     Indication: DYSMENORRHOEA
     Dosage: UNK UNK, PRN
     Route: 048
     Dates: start: 19980101
  2. HYDROCODONE BITARTRATE AND ACETAMINOPHEN [Concomitant]
     Route: 048
  3. EFFEXOR XR [Concomitant]
     Dosage: 150 MG, QD
     Route: 048
  4. SULFAMETHOXAZOLE AND TRIMETHOPRIM [Concomitant]
     Route: 048
  5. FLUCONAZOLE [Concomitant]
     Dosage: 200 MG, QD
     Route: 048
  6. YASMIN [Suspect]
     Dosage: UNK UNK, QD
     Dates: start: 20080201, end: 20081001
  7. NAPROXEN [Concomitant]
     Dosage: 500 MG, BID
     Route: 048
  8. PROPOXYPHENE NAPSYLATE W/PARACETAMOL [Concomitant]
     Dosage: UNK UNK, Q4HR
     Route: 048
  9. YAZ [Suspect]
     Dosage: UNK UNK, QD
     Dates: start: 20080201, end: 20081001

REACTIONS (7)
  - ASTHENIA [None]
  - PULMONARY EMBOLISM [None]
  - DEFORMITY [None]
  - DISABILITY [None]
  - PAIN IN EXTREMITY [None]
  - DEEP VEIN THROMBOSIS [None]
  - PAIN [None]
